FAERS Safety Report 10310473 (Version 1)
Quarter: 2014Q3

REPORT INFORMATION
  Report Type: Spontaneous
  Country: US (occurrence: None)
  Receive Date: 20140716
  Receipt Date: 20140716
  Transmission Date: 20150326
  Serious: Yes (Hospitalization)
  Sender: FDA-Public Use
  Company Number: None

PATIENT
  Age: 65 Year
  Sex: Female
  Weight: 86.18 kg

DRUGS (2)
  1. BENICAR HCT [Suspect]
     Active Substance: HYDROCHLOROTHIAZIDE\OLMESARTAN MEDOXOMIL
     Indication: HYPERTENSION
     Dosage: 1
     Dates: start: 2008, end: 20140526
  2. DILTIAZEM HYDROCHLORIDE EXTENDED RELEASE [Suspect]
     Active Substance: DILTIAZEM HYDROCHLORIDE

REACTIONS (10)
  - Gait disturbance [None]
  - Vomiting [None]
  - Blood potassium decreased [None]
  - Diarrhoea [None]
  - Asthenia [None]
  - Malaise [None]
  - Nausea [None]
  - Gastrointestinal inflammation [None]
  - Weight decreased [None]
  - Blood magnesium abnormal [None]

NARRATIVE: CASE EVENT DATE: 20140424
